FAERS Safety Report 4385840-X (Version None)
Quarter: 2004Q2

REPORT INFORMATION
  Report Type: 
  Country: None (occurrence: None)
  Receive Date: 20040622
  Receipt Date: 20040616
  Transmission Date: 20050107
  Serious: Yes (Hospitalization)
  Sender: FDA-Public Use
  Company Number: MK200406-0137-1

PATIENT
  Age: 13 Year
  Sex: Male

DRUGS (3)
  1. TOFRANIL [Suspect]
     Indication: DEPRESSION
     Dosage: 25MG, DAILY
     Dates: start: 20040402, end: 20040616
  2. PHENYTOIN [Concomitant]
  3. RIVOTRIL [Concomitant]

REACTIONS (8)
  - ANXIETY [None]
  - EPILEPSY [None]
  - FEELING HOT [None]
  - HEAD DISCOMFORT [None]
  - HYPERHIDROSIS [None]
  - INSOMNIA [None]
  - NERVOUS SYSTEM DISORDER [None]
  - NERVOUSNESS [None]
